FAERS Safety Report 5981547-3 (Version None)
Quarter: 2008Q4

REPORT INFORMATION
  Report Type: 
  Country: None (occurrence: None)
  Receive Date: 20081202
  Receipt Date: 20081119
  Transmission Date: 20090506
  Serious: Yes (Hospitalization)
  Sender: FDA-Public Use
  Company Number: SPV1-2008-02477

PATIENT
  Age: 28 Year
  Sex: Male
  Weight: 113.4 kg

DRUGS (4)
  1. VYVANSE [Suspect]
     Indication: ATTENTION DEFICIT/HYPERACTIVITY DISORDER
     Dosage: 40 MG, 1X/DAY: QD, ORAL
     Route: 048
     Dates: start: 20081016, end: 20081109
  2. VYVANSE [Suspect]
     Indication: BIPOLAR DISORDER
     Dosage: 40 MG, 1X/DAY: QD, ORAL
     Route: 048
     Dates: start: 20081016, end: 20081109
  3. HYDROXYZINE [Concomitant]
  4. BENADRYL [Concomitant]

REACTIONS (5)
  - BLOOD ALBUMIN DECREASED [None]
  - BLOOD CALCIUM DECREASED [None]
  - DYSPNOEA [None]
  - PANCREATITIS [None]
  - PROTEIN TOTAL DECREASED [None]
